FAERS Safety Report 12905832 (Version 3)
Quarter: 2016Q4

REPORT INFORMATION
  Report Type: Report from Study
  Country: US (occurrence: US)
  Receive Date: 20161103
  Receipt Date: 20161201
  Transmission Date: 20170207
  Serious: No
  Sender: FDA-Public Use
  Company Number: PHEH2016US028620

PATIENT
  Sex: Male

DRUGS (3)
  1. WATER PILLS [Concomitant]
     Active Substance: UNSPECIFIED INGREDIENT
     Indication: PRODUCT USED FOR UNKNOWN INDICATION
     Dosage: UNK
     Route: 065
  2. ENTRESTO [Suspect]
     Active Substance: SACUBITRIL\VALSARTAN
     Indication: CARDIAC FAILURE
     Dosage: 50 MG, BID
     Route: 048
  3. ASPIRIN. [Concomitant]
     Active Substance: ASPIRIN
     Indication: PRODUCT USED FOR UNKNOWN INDICATION
     Dosage: UNK
     Route: 065

REACTIONS (9)
  - Retching [Unknown]
  - Asthenia [Unknown]
  - Muscle spasms [Unknown]
  - Nausea [Unknown]
  - Abdominal discomfort [Unknown]
  - Pain [Unknown]
  - Peripheral swelling [Unknown]
  - Decreased appetite [Unknown]
  - Insomnia [Unknown]
